FAERS Safety Report 10312187 (Version 4)
Quarter: 2023Q1

REPORT INFORMATION
  Report Type: Other
  Country: CA (occurrence: CA)
  Receive Date: 20140718
  Receipt Date: 20230104
  Transmission Date: 20230417
  Serious: Yes (Other)
  Sender: FDA-Public Use
  Company Number: CA-ROCHE-1436298

PATIENT
  Age: 50 Year
  Sex: Female

DRUGS (3)
  1. XOLAIR [Suspect]
     Active Substance: OMALIZUMAB
     Indication: Asthma
     Route: 058
     Dates: start: 20060407
  2. XOLAIR [Suspect]
     Active Substance: OMALIZUMAB
     Route: 058
  3. XOLAIR [Suspect]
     Active Substance: OMALIZUMAB
     Route: 058
     Dates: start: 20221230

REACTIONS (9)
  - H1N1 influenza [Unknown]
  - Bone deformity [Unknown]
  - Sluggishness [Unknown]
  - Impaired healing [Unknown]
  - Myalgia [Unknown]
  - Fatigue [Unknown]
  - Somnolence [Recovering/Resolving]
  - Pain [Unknown]
  - Viral infection [Unknown]

NARRATIVE: CASE EVENT DATE: 20090101
